FAERS Safety Report 7118384-2 (Version None)
Quarter: 2010Q4

REPORT INFORMATION
  Report Type: 
  Country: None (occurrence: None)
  Receive Date: 20101020
  Receipt Date: 20100923
  Transmission Date: 20110411
  Serious: Yes (Hospitalization)
  Sender: FDA-Public Use
  Company Number: AUR-APL-2010-02464

PATIENT
  Age: 49 Year
  Sex: Male
  Weight: 80 kg

DRUGS (5)
  1. HYDROCHLOROTHIAZIDE [Suspect]
     Indication: HYPERTENSION
     Dosage: ORAL
     Route: 048
     Dates: start: 20100406, end: 20100915
  2. CHANTIX [Suspect]
     Indication: SMOKING CESSATION THERAPY
     Dosage: 1MG - BID - ORAL
     Route: 048
     Dates: start: 20100713, end: 20100917
  3. BENAZEPRIL [Concomitant]
  4. NORVASC [Concomitant]
  5. TYLENOL [Concomitant]

REACTIONS (1)
  - PANCREATITIS [None]
